FAERS Safety Report 23235070 (Version 1)
Quarter: 2023Q4

REPORT INFORMATION
  Report Type: Spontaneous
  Country: US (occurrence: None)
  Receive Date: 20231128
  Receipt Date: 20231128
  Transmission Date: 20240110
  Serious: Yes (Other)
  Sender: FDA-Public Use
  Company Number: None

PATIENT
  Age: 57 Year
  Sex: Female

DRUGS (1)
  1. EVEROLIMUS [Suspect]
     Active Substance: EVEROLIMUS
     Dosage: FREQUENCY : DAILY;?
     Dates: start: 2023

REACTIONS (5)
  - Dyspnoea [None]
  - Abdominal pain [None]
  - Nausea [None]
  - Ageusia [None]
  - Decreased appetite [None]

NARRATIVE: CASE EVENT DATE: 20231018
